FAERS Safety Report 7929544 (Version 2)
Quarter: 2012Q4

REPORT INFORMATION
  Report Type: 
  Country: US (occurrence: US)
  Receive Date: 20110504
  Receipt Date: 20120828
  Transmission Date: 20130627
  Serious: Yes (Other)
  Sender: FDA-Public Use
  Company Number: US-US-EMD SERONO, INC.-7056223

PATIENT
  Age: 47 None
  Sex: Female

DRUGS (3)
  1. REBIF [Suspect]
     Indication: PRODUCT USED FOR UNKNOWN INDICATION
     Route: 058
     Dates: start: 20090627, end: 2010
  2. REBIF [Suspect]
     Route: 058
     Dates: start: 2010
  3. TYLENOL [Concomitant]
     Indication: PAIN

REACTIONS (4)
  - Gangrene [Unknown]
  - Liver function test abnormal [Not Recovered/Not Resolved]
  - Fall [Unknown]
  - Influenza like illness [Unknown]
